FAERS Safety Report 8414897-1 (Version None)
Quarter: 2012Q2

REPORT INFORMATION
  Report Type: 
  Country: None (occurrence: None)
  Receive Date: 20120601
  Receipt Date: 20120601
  Transmission Date: 20120825
  Serious: Yes (Disabling)
  Sender: FDA-Public Use
  Company Number: None

PATIENT
  Age: 76 Year
  Sex: Male
  Weight: 79.3795 kg

DRUGS (1)
  1. ATORVASTATIN [Suspect]
     Indication: BLOOD CHOLESTEROL
     Dosage: 20MG DAILY PO
     Route: 048
     Dates: start: 20120322, end: 20120518

REACTIONS (3)
  - PRODUCT SUBSTITUTION ISSUE [None]
  - MUSCLE SPASMS [None]
  - PAIN IN EXTREMITY [None]
